FAERS Safety Report 12247228 (Version 1)
Quarter: 2016Q2

REPORT INFORMATION
  Report Type: Spontaneous
  Country: CA (occurrence: CA)
  Receive Date: 20160407
  Receipt Date: 20160407
  Transmission Date: 20160815
  Serious: Yes (Hospitalization)
  Sender: FDA-Public Use
  Company Number: CA-ACTELION-A-US2016-133944

PATIENT
  Age: 48 Year
  Sex: Female
  Weight: 55 kg

DRUGS (11)
  1. ADCIRCA [Concomitant]
     Active Substance: TADALAFIL
  2. ATIVAN [Concomitant]
     Active Substance: LORAZEPAM
     Dosage: UNK, PRN
  3. CARIPUL [Suspect]
     Active Substance: EPOPROSTENOL
     Indication: PULMONARY ARTERIAL HYPERTENSION
     Dosage: UNK
     Route: 042
     Dates: start: 20141121
  4. DIAMICRON [Concomitant]
     Active Substance: GLICLAZIDE
  5. ZAROXOLYN [Concomitant]
     Active Substance: METOLAZONE
  6. IRON [Concomitant]
     Active Substance: IRON
  7. LASIX [Concomitant]
     Active Substance: FUROSEMIDE
  8. RANITIDINE. [Concomitant]
     Active Substance: RANITIDINE
  9. METFORMIN [Concomitant]
     Active Substance: METFORMIN HYDROCHLORIDE
  10. POTASSIUM [Concomitant]
     Active Substance: POTASSIUM
  11. SPIRONOLACTONE. [Concomitant]
     Active Substance: SPIRONOLACTONE

REACTIONS (4)
  - Hypotension [Unknown]
  - Thinking abnormal [Unknown]
  - Sepsis [Unknown]
  - Fatigue [Unknown]
